FAERS Safety Report 15778291 (Version 1)
Quarter: 2018Q4

REPORT INFORMATION
  Report Type: Spontaneous
  Country: US (occurrence: US)
  Receive Date: 20181231
  Receipt Date: 20181231
  Transmission Date: 20190205
  Serious: No
  Sender: FDA-Public Use
  Company Number: US-009507513-1812USA011881

PATIENT
  Age: 81 Year
  Sex: Male

DRUGS (6)
  1. TAMSULOSIN HYDROCHLORIDE. [Concomitant]
     Active Substance: TAMSULOSIN HYDROCHLORIDE
  2. GENTAMICIN. [Concomitant]
     Active Substance: GENTAMICIN
     Dosage: 1 MILLIGRAM/KILOGRAM, Q8H
     Route: 042
  3. CUBICIN [Suspect]
     Active Substance: DAPTOMYCIN
     Dosage: 8 MILLIGRAM/KILOGRAM, EVERY 24 H
     Route: 042
  4. VANCOMYCIN [Concomitant]
     Active Substance: VANCOMYCIN
     Dosage: 15 MG/KG, EVERY 12 H
     Route: 042
  5. CUBICIN [Suspect]
     Active Substance: DAPTOMYCIN
     Indication: STAPHYLOCOCCAL INFECTION
     Dosage: 6 MILLIGRAM/KILOGRAM, EVERY 24 H
     Route: 042
  6. CLONIDINE. [Concomitant]
     Active Substance: CLONIDINE

REACTIONS (1)
  - Treatment failure [Unknown]
